FAERS Safety Report 4510740-1 (Version None)
Quarter: 2004Q4

REPORT INFORMATION
  Report Type: 
  Country: None (occurrence: None)
  Receive Date: 20041025
  Receipt Date: 20040218
  Transmission Date: 20050328
  Serious: Yes (Hospitalization)
  Sender: FDA-Public Use
  Company Number: NSADSS2002037228

PATIENT
  Age: 73 Year
  Sex: Male
  Weight: 57.38 kg

DRUGS (9)
  1. REMICADE [Suspect]
     Indication: RHEUMATOID ARTHRITIS
     Dosage: 3 MG/KG, 1 IN 1 AS NECESSARY
     Route: 041
     Dates: start: 20020731, end: 20020731
  2. COZAAR (LOSRTAN POTASSIUM) [Concomitant]
  3. CELEBREX [Concomitant]
  4. METHOTREXATE [Concomitant]
  5. FOSAMAX [Concomitant]
  6. PREDNISONE [Concomitant]
  7. PREVACID [Concomitant]
  8. LIPITOR (LANSOPRAZOLE) [Concomitant]
  9. ASPIRIN [Concomitant]

REACTIONS (2)
  - BRADYCARDIA [None]
  - HERPES ZOSTER [None]
